FAERS Safety Report 13711449 (Version 1)
Quarter: 2017Q3

REPORT INFORMATION
  Report Type: Report from Study
  Country: US (occurrence: US)
  Receive Date: 20170703
  Receipt Date: 20170703
  Transmission Date: 20171127
  Serious: No
  Sender: FDA-Public Use
  Company Number: GXBR2017US002036

PATIENT
  Sex: Female
  Weight: 81.64 kg

DRUGS (2)
  1. GLATOPA [Suspect]
     Active Substance: GLATIRAMER ACETATE
     Indication: MULTIPLE SCLEROSIS
     Dosage: 20 MG, UNK ROTATES SITES
     Route: 058
  2. DDD CHOLECALCIFEROL (VITAMIN D3) [Concomitant]
     Indication: PRODUCT USED FOR UNKNOWN INDICATION
     Route: 065

REACTIONS (2)
  - Injection site nodule [Not Recovered/Not Resolved]
  - Pigmentation disorder [Not Recovered/Not Resolved]
